FAERS Safety Report 16667851 (Version 1)
Quarter: 2019Q3

REPORT INFORMATION
  Report Type: Spontaneous
  Country: DE (occurrence: DE)
  Receive Date: 20190805
  Receipt Date: 20190805
  Transmission Date: 20191004
  Serious: Yes (Other)
  Sender: FDA-Public Use
  Company Number: PHHY2019DE180674

PATIENT
  Age: 90 Year
  Sex: Female

DRUGS (2)
  1. REVOLADE [Suspect]
     Active Substance: ELTROMBOPAG
     Indication: HAIRY CELL LEUKAEMIA
     Dosage: 50 MG, UNK
     Route: 065
     Dates: start: 201907, end: 201907
  2. REVOLADE [Suspect]
     Active Substance: ELTROMBOPAG
     Dosage: 75 MG, UNK
     Route: 065
     Dates: start: 201907

REACTIONS (2)
  - Platelet count decreased [Unknown]
  - Product use in unapproved indication [Unknown]
